FAERS Safety Report 24015765 (Version 1)
Quarter: 2024Q2

REPORT INFORMATION
  Report Type: Spontaneous
  Country: US (occurrence: US)
  Receive Date: 20240626
  Receipt Date: 20240626
  Transmission Date: 20240716
  Serious: No
  Sender: FDA-Public Use
  Company Number: US-MYLANLABS-2024M1054857

PATIENT
  Sex: Female

DRUGS (1)
  1. GABAPENTIN [Suspect]
     Active Substance: GABAPENTIN
     Indication: Analgesic therapy
     Dosage: UNK
     Route: 065
     Dates: start: 2017

REACTIONS (3)
  - Quality of life decreased [Unknown]
  - Impaired work ability [Unknown]
  - Amnesia [Unknown]
